FAERS Safety Report 19589861 (Version 2)
Quarter: 2021Q3

REPORT INFORMATION
  Report Type: Report from Study
  Country: US (occurrence: US)
  Receive Date: 20210721
  Receipt Date: 20210824
  Transmission Date: 20211014
  Serious: Yes (Death, Hospitalization, Other)
  Sender: FDA-Public Use
  Company Number: US-SHIRE-US202006553

PATIENT
  Age: 60 Year
  Sex: Male
  Weight: 82 kg

DRUGS (9)
  1. TEDUGLUTIDE [Suspect]
     Active Substance: TEDUGLUTIDE
     Indication: SHORT-BOWEL SYNDROME
     Dosage: 4.5 MILLIGRAM (0.05 MG KG TED DAILY DOSE, 7 TED DOSAGE PER WEEK)
     Route: 065
     Dates: start: 202001, end: 20200207
  2. TEDUGLUTIDE [Suspect]
     Active Substance: TEDUGLUTIDE
     Dosage: 2.5 MILLIGRAM (0.0250 MG/KG), 7 DOSES PER WEEK
     Route: 065
     Dates: start: 20200315
  3. TEDUGLUTIDE [Suspect]
     Active Substance: TEDUGLUTIDE
     Indication: SHORT-BOWEL SYNDROME
     Dosage: 4.5 MILLIGRAM (0.05 MG KG TED DAILY DOSE, 7 TED DOSAGE PER WEEK)
     Route: 065
     Dates: start: 202001, end: 20200207
  4. TEDUGLUTIDE [Suspect]
     Active Substance: TEDUGLUTIDE
     Dosage: 2.5 MILLIGRAM (0.0250 MG/KG), 7 DOSES PER WEEK
     Route: 065
     Dates: start: 20200315
  5. TEDUGLUTIDE [Suspect]
     Active Substance: TEDUGLUTIDE
     Indication: SHORT-BOWEL SYNDROME
     Dosage: 4.5 MILLIGRAM (0.05 MG KG TED DAILY DOSE, 7 TED DOSAGE PER WEEK)
     Route: 065
     Dates: start: 202001, end: 20200207
  6. TEDUGLUTIDE [Suspect]
     Active Substance: TEDUGLUTIDE
     Indication: SHORT-BOWEL SYNDROME
     Dosage: 4.5 MILLIGRAM (0.05 MG KG TED DAILY DOSE, 7 TED DOSAGE PER WEEK)
     Route: 065
     Dates: start: 202001, end: 20200207
  7. TEDUGLUTIDE [Suspect]
     Active Substance: TEDUGLUTIDE
     Dosage: 2.5 MILLIGRAM (0.0250 MG/KG), 7 DOSES PER WEEK
     Route: 065
     Dates: start: 20200315
  8. NAFCILLIN [Concomitant]
     Active Substance: NAFCILLIN SODIUM
     Indication: BACTERAEMIA
     Dosage: 12 GRAM, QD
     Route: 042
     Dates: start: 20190811, end: 20190910
  9. TEDUGLUTIDE [Suspect]
     Active Substance: TEDUGLUTIDE
     Dosage: 2.5 MILLIGRAM (0.0250 MG/KG), 7 DOSES PER WEEK
     Route: 065
     Dates: start: 20200315

REACTIONS (2)
  - Bacteraemia [Recovered/Resolved]
  - Chronic kidney disease [Fatal]

NARRATIVE: CASE EVENT DATE: 20200207
